FAERS Safety Report 7077994-1 (Version None)
Quarter: 2010Q4

REPORT INFORMATION
  Report Type: 
  Country: None (occurrence: None)
  Receive Date: 20101101
  Receipt Date: 20101026
  Transmission Date: 20110411
  Serious: Yes (Hospitalization, Other)
  Sender: FDA-Public Use
  Company Number: FR-BRISTOL-MYERS SQUIBB COMPANY-15355175

PATIENT
  Age: 76 Year
  Sex: Female

DRUGS (3)
  1. IRBESARTAN [Suspect]
     Dosage: 1 DF=APROVEL 75 MG (IRBESARTAN) 0.5/D
     Dates: end: 20101003
  2. NEBIVOLOL HCL [Suspect]
     Dosage: 1 DF: NEBILOX 5 MG (NEBIVOLOL) 1/D
     Route: 048
     Dates: end: 20101003
  3. LEXOMIL [Suspect]
     Dosage: 1 DF=LEXOMIL ROCHE (BROMAZEPAM) 0.25/D
     Dates: end: 20101003

REACTIONS (3)
  - CHOLESTASIS [None]
  - HYPERBILIRUBINAEMIA [None]
  - JAUNDICE [None]
